FAERS Safety Report 24066172 (Version 1)
Quarter: 2024Q3

REPORT INFORMATION
  Report Type: Spontaneous
  Country: CN (occurrence: CN)
  Receive Date: 20240709
  Receipt Date: 20240709
  Transmission Date: 20241017
  Serious: Yes (Death, Life-Threatening)
  Sender: PFIZER
  Company Number: CN-PFIZER INC-PV202400087378

PATIENT
  Age: 68 Year
  Sex: Male

DRUGS (6)
  1. METHYLPREDNISOLONE SODIUM SUCCINATE [Suspect]
     Active Substance: METHYLPREDNISOLONE SODIUM SUCCINATE
     Indication: Immune-mediated lung disease
     Dosage: 240 MG, 2X/DAY (BID); HIGH-DOSE
     Route: 042
     Dates: start: 20211013
  2. CEFOPERAZONE SODIUM\SULBACTAM SODIUM [Suspect]
     Active Substance: CEFOPERAZONE SODIUM\SULBACTAM SODIUM
     Indication: Immune-mediated lung disease
     Dosage: 3 G
     Route: 041
     Dates: start: 20211013
  3. PIRFENIDONE [Suspect]
     Active Substance: PIRFENIDONE
     Indication: Immune-mediated lung disease
     Dosage: 200 MG, 3X/DAY
     Dates: start: 20211014
  4. IMMUNE GLOBULIN NOS [Suspect]
     Active Substance: IMMUNE GLOBULIN NOS
     Indication: Immune-mediated lung disease
     Dosage: 2 G/KG/DAY
     Dates: start: 202110, end: 202110
  5. INFLIXIMAB [Suspect]
     Active Substance: INFLIXIMAB
     Indication: Immune-mediated lung disease
     Dosage: 5 MG/KG
     Dates: start: 202110
  6. TOCILIZUMAB [Suspect]
     Active Substance: TOCILIZUMAB
     Indication: Immune-mediated lung disease
     Dosage: 8 MG/KG
     Dates: start: 202110

REACTIONS (2)
  - Drug ineffective for unapproved indication [Fatal]
  - Off label use [Fatal]

NARRATIVE: CASE EVENT DATE: 20211013
